FAERS Safety Report 12071867 (Version 1)
Quarter: 2016Q1

REPORT INFORMATION
  Report Type: Report from Study
  Country: ID (occurrence: ID)
  Receive Date: 20160212
  Receipt Date: 20160212
  Transmission Date: 20160526
  Serious: Yes (Death, Other)
  Sender: FDA-Public Use
  Company Number: ID-ROCHE-1670940

PATIENT
  Age: 52 Year
  Sex: Female

DRUGS (1)
  1. AVASTIN [Suspect]
     Active Substance: BEVACIZUMAB
     Indication: COLORECTAL CANCER METASTATIC
     Route: 065

REACTIONS (6)
  - Anaemia [Unknown]
  - Frequent bowel movements [Unknown]
  - Haematochezia [Unknown]
  - General physical health deterioration [Fatal]
  - Pain in extremity [Unknown]
  - Wound [Unknown]
